FAERS Safety Report 5331997-3 (Version None)
Quarter: 2007Q2

REPORT INFORMATION
  Report Type: 
  Country: None (occurrence: None)
  Receive Date: 20070523
  Receipt Date: 20070515
  Transmission Date: 20071010
  Serious: Yes (Other)
  Sender: FDA-Public Use
  Company Number: PHNR2007AU01125

PATIENT
  Sex: Female

DRUGS (1)
  1. CLOZARIL [Suspect]
     Dosage: 12.5-650MG
     Route: 048
     Dates: start: 20010530, end: 20070515

REACTIONS (1)
  - CEREBROVASCULAR ACCIDENT [None]
